FAERS Safety Report 21763006 (Version 1)
Quarter: 2022Q4

REPORT INFORMATION
  Report Type: Spontaneous
  Country: US (occurrence: None)
  Receive Date: 20221220
  Receipt Date: 20221220
  Transmission Date: 20230113
  Serious: No
  Sender: FDA-Public Use
  Company Number: None

PATIENT
  Sex: Male

DRUGS (2)
  1. DEVICE [Suspect]
     Active Substance: DEVICE
     Indication: Pulmonary arterial hypertension
     Dates: start: 202209
  2. TREPROSTINIL [Suspect]
     Active Substance: TREPROSTINIL
     Dosage: 121 NG/KG/MIN CONTINUOUS  INTRAVENOUS
     Route: 042

REACTIONS (3)
  - Dyspnoea [None]
  - Erythema [None]
  - Device issue [None]
